FAERS Safety Report 9416947 (Version 1)
Quarter: 2013Q3

REPORT INFORMATION
  Report Type: Spontaneous
  Country: US (occurrence: None)
  Receive Date: 20130722
  Receipt Date: 20130722
  Transmission Date: 20140515
  Serious: Yes (Other)
  Sender: FDA-Public Use
  Company Number: KV201300149

PATIENT
  Age: 28 Year
  Sex: Female

DRUGS (2)
  1. MAKENA [Suspect]
     Indication: PREMATURE DELIVERY
     Route: 030
     Dates: start: 20130621, end: 20130621
  2. PRENATAL VITAMINS [Concomitant]

REACTIONS (3)
  - Premature rupture of membranes [None]
  - Foetal death [None]
  - Exposure during pregnancy [None]
